FAERS Safety Report 6888138-0 (Version None)
Quarter: 2010Q3

REPORT INFORMATION
  Report Type: 
  Country: None (occurrence: None)
  Receive Date: 20100730
  Receipt Date: 20100507
  Transmission Date: 20110219
  Serious: Yes (Hospitalization)
  Sender: FDA-Public Use
  Company Number: SE-MERCK-1005SWE00002

PATIENT
  Age: 42 Year
  Sex: Male

DRUGS (3)
  1. PROPECIA [Suspect]
     Indication: ALOPECIA
     Route: 048
     Dates: start: 20100208, end: 20100301
  2. ACETYLCYSTEINE [Suspect]
     Route: 048
     Dates: start: 20100302, end: 20100302
  3. ACETAMINOPHEN [Concomitant]
     Route: 065

REACTIONS (3)
  - ABDOMINAL PAIN [None]
  - TRANSAMINASES INCREASED [None]
  - URTICARIA [None]
